FAERS Safety Report 9416941 (Version 1)
Quarter: 2013Q3

REPORT INFORMATION
  Report Type: Spontaneous
  Country: BR (occurrence: None)
  Receive Date: 20130719
  Receipt Date: 20130719
  Transmission Date: 20140515
  Serious: Yes (Hospitalization)
  Sender: FDA-Public Use
  Company Number: DSJ-2013-15821

PATIENT
  Age: 80 Year
  Sex: Female
  Weight: 86 kg

DRUGS (5)
  1. BENICAR HCT [Suspect]
     Indication: HYPERTENSION
     Route: 048
     Dates: start: 2010
  2. DIOSMIN/HESPERIDIN (HESPERIDON, DIOSMIN) (HERSPPERDIN) [Concomitant]
  3. ACETYLSLAICYLICA ACID (ACETYLSACLICYCLIC ACID) (ACETYLSALICYLIC ACID) [Concomitant]
  4. SIMVASTATIN (SIMVASTATIN) 9SIMVASTATIN) [Concomitant]
  5. MEDICINE FOR MEMORY DISORDER [Concomitant]

REACTIONS (3)
  - Blood pressure increased [None]
  - Angioplasty [None]
  - Drug administration error [None]
